FAERS Safety Report 4380991-8 (Version None)
Quarter: 2004Q2

REPORT INFORMATION
  Report Type: 
  Country: None (occurrence: None)
  Receive Date: 20040614
  Receipt Date: 20040607
  Transmission Date: 20050107
  Serious: Yes (Hospitalization)
  Sender: FDA-Public Use
  Company Number: SEWYE815309JUN04

PATIENT
  Age: 20 Year
  Sex: Female

DRUGS (3)
  1. EFFEXOR [Suspect]
     Indication: ANOREXIA
     Route: 048
  2. EFFEXOR [Suspect]
     Indication: DEPRESSION
     Route: 048
  3. CLONAZEPAM [Suspect]
     Dosage: 30 TABLETS AT ONE TIME
     Route: 048

REACTIONS (4)
  - DEAFNESS [None]
  - INTENTIONAL OVERDOSE [None]
  - RESPIRATORY DISORDER [None]
  - SUICIDE ATTEMPT [None]
